FAERS Safety Report 11237214 (Version 1)
Quarter: 2015Q3

REPORT INFORMATION
  Report Type: Spontaneous
  Country: BR (occurrence: BR)
  Receive Date: 20150703
  Receipt Date: 20150703
  Transmission Date: 20151125
  Serious: Yes (Other)
  Sender: FDA-Public Use
  Company Number: BR-AMGEN-BRASP2015053608

PATIENT
  Age: 31 Year
  Sex: Female
  Weight: 52 kg

DRUGS (5)
  1. PREDNISONE. [Concomitant]
     Active Substance: PREDNISONE
     Indication: INJECTION SITE OEDEMA
  2. PREDNISONE. [Concomitant]
     Active Substance: PREDNISONE
     Indication: INJECTION SITE PRURITUS
     Dosage: 5 MG, DAILY
  3. ENBREL [Suspect]
     Active Substance: ETANERCEPT
     Indication: RHEUMATOID ARTHRITIS
     Dosage: 50 MG, WEEKLY
     Route: 058
     Dates: start: 20150417, end: 20150515
  4. PREDNISONE. [Concomitant]
     Active Substance: PREDNISONE
     Indication: INJECTION SITE ERYTHEMA
     Dosage: 10 MG
  5. HYDROXYCHLOROQUINE [Concomitant]
     Active Substance: HYDROXYCHLOROQUINE
     Dosage: 400 MG, DAILY
     Dates: start: 201308

REACTIONS (8)
  - Injection site reaction [Unknown]
  - Erythema [Unknown]
  - Drug hypersensitivity [Unknown]
  - Injection site pruritus [Unknown]
  - Oedema peripheral [Unknown]
  - Injection site erythema [Unknown]
  - Pruritus [Unknown]
  - Injection site oedema [Unknown]

NARRATIVE: CASE EVENT DATE: 2015
